FAERS Safety Report 4330668-X (Version None)
Quarter: 2004Q2

REPORT INFORMATION
  Report Type: 
  Country: None (occurrence: None)
  Receive Date: 20040402
  Receipt Date: 20040322
  Transmission Date: 20050107
  Serious: Yes (Hospitalization)
  Sender: FDA-Public Use
  Company Number: JP-GLAXOSMITHKLINE-B0328121A

PATIENT
  Age: 71 Year
  Sex: Female

DRUGS (5)
  1. VALTREX [Suspect]
     Indication: HERPES SIMPLEX
     Dosage: 500MG TWICE PER DAY
     Route: 048
     Dates: start: 20040302, end: 20040306
  2. LUNIAMYCIN [Concomitant]
  3. COFMESIN [Concomitant]
     Route: 065
  4. CYANOCOBALAMIN [Concomitant]
     Route: 065
  5. PRIMPERAN INJ [Concomitant]
     Route: 065

REACTIONS (3)
  - ALANINE AMINOTRANSFERASE INCREASED [None]
  - ASPARTATE AMINOTRANSFERASE INCREASED [None]
  - HEPATITIS ACUTE [None]
